FAERS Safety Report 9410886 (Version 2)
Quarter: 2013Q4

REPORT INFORMATION
  Report Type: Spontaneous
  Country: BR (occurrence: BR)
  Receive Date: 20130719
  Receipt Date: 20131011
  Transmission Date: 20140711
  Serious: Yes (Life-Threatening, Hospitalization, Other)
  Sender: FDA-Public Use
  Company Number: CHNY2013BR001524

PATIENT
  Age: 81 Year
  Sex: Female
  Weight: 70 kg

DRUGS (2)
  1. CIBALENAA [Suspect]
     Indication: PAIN
     Dosage: UNK, PRN
     Route: 048
  2. TRAMADOL [Concomitant]
     Indication: PAIN
     Dosage: 50 MG, QD
     Route: 048

REACTIONS (7)
  - Osteoporosis [Unknown]
  - Spinal fracture [Recovering/Resolving]
  - Nosocomial infection [Recovered/Resolved]
  - Rhinitis [Not Recovered/Not Resolved]
  - Skeletal injury [Unknown]
  - Gait disturbance [Not Recovered/Not Resolved]
  - Drug ineffective [Unknown]
